FAERS Safety Report 5598563-6 (Version None)
Quarter: 2008Q1

REPORT INFORMATION
  Report Type: 
  Country: None (occurrence: None)
  Receive Date: 20080122
  Receipt Date: 20080116
  Transmission Date: 20080703
  Serious: Yes (Hospitalization)
  Sender: FDA-Public Use
  Company Number: FR-ELI_LILLY_AND_COMPANY-FR200801003072

PATIENT
  Sex: Male

DRUGS (2)
  1. GEMZAR [Suspect]
     Indication: LUNG NEOPLASM MALIGNANT
     Dosage: UNK, UNKNOWN
     Route: 042
     Dates: end: 20070924
  2. PARAPLATIN [Concomitant]
     Indication: LUNG NEOPLASM MALIGNANT
     Dosage: 465 MG, OTHER
     Route: 042
     Dates: end: 20070924

REACTIONS (4)
  - LIP OEDEMA [None]
  - NAUSEA [None]
  - PRURITUS [None]
  - RESPIRATORY DISORDER [None]
